FAERS Safety Report 21567857 (Version 1)
Quarter: 2022Q4

REPORT INFORMATION
  Report Type: Spontaneous
  Country: CA (occurrence: CA)
  Receive Date: 20221108
  Receipt Date: 20221108
  Transmission Date: 20230113
  Serious: Yes (Other)
  Sender: FDA-Public Use
  Company Number: CA-PFIZER INC-202201276810

PATIENT
  Age: 47 Year
  Sex: Male

DRUGS (5)
  1. METHOTREXATE SODIUM [Suspect]
     Active Substance: METHOTREXATE SODIUM
     Indication: Rheumatoid arthritis
     Dosage: 1 DF
     Dates: start: 202107, end: 202205
  2. SULFASALAZINE [Suspect]
     Active Substance: SULFASALAZINE
     Indication: Rheumatoid arthritis
     Dosage: 1 DF
     Dates: start: 202107, end: 202205
  3. HYDROXYCHLOROQUINE [Suspect]
     Active Substance: HYDROXYCHLOROQUINE
     Dosage: UNK
     Dates: start: 202107, end: 202205
  4. PREDNISONE [Suspect]
     Active Substance: PREDNISONE
     Dosage: UNK
     Dates: start: 202107, end: 202205
  5. ERELZI [Concomitant]
     Active Substance: ETANERCEPT-SZZS
     Dosage: UNK, WEEKLY (WEEKLY ON SUNDAYS )
     Dates: start: 202111

REACTIONS (5)
  - Lipoma [Recovered/Resolved]
  - Fatigue [Unknown]
  - Anxiety [Unknown]
  - Alopecia [Unknown]
  - Herpes zoster [Recovered/Resolved]

NARRATIVE: CASE EVENT DATE: 20220201
